FAERS Safety Report 11328273 (Version 1)
Quarter: 2015Q3

REPORT INFORMATION
  Report Type: Spontaneous
  Country: AT (occurrence: AT)
  Receive Date: 20150731
  Receipt Date: 20150731
  Transmission Date: 20151125
  Serious: Yes (Death, Hospitalization)
  Sender: FDA-Public Use
  Company Number: AT-ABBVIE-15P-009-1434061-00

PATIENT
  Age: 65 Year
  Sex: Female

DRUGS (1)
  1. DUODOPA [Suspect]
     Active Substance: CARBIDOPA\LEVODOPA
     Indication: PARKINSON^S DISEASE
     Dosage: MD: 8 ML, ED: 1.5 ML, CR: 3.2 ML/H
     Route: 065
     Dates: start: 20131209

REACTIONS (2)
  - Death [Fatal]
  - Pyrexia [Fatal]

NARRATIVE: CASE EVENT DATE: 20150724
